FAERS Safety Report 6900258-0 (Version None)
Quarter: 2010Q3

REPORT INFORMATION
  Report Type: 
  Country: None (occurrence: None)
  Receive Date: 20100803
  Receipt Date: 20100722
  Transmission Date: 20110219
  Serious: Yes (Other)
  Sender: FDA-Public Use
  Company Number: US-WYE-H16423810

PATIENT
  Sex: Female
  Weight: 124.85 kg

DRUGS (6)
  1. EFFEXOR XR [Suspect]
     Indication: DEPRESSION
     Route: 048
     Dates: start: 20030101
  2. VENLAFAXINE HYDROCHLORIDE [Suspect]
     Indication: DEPRESSION
     Dosage: UNKNOWN
     Dates: start: 20100301, end: 20100601
  3. ENALAPRIL MALEATE [Concomitant]
     Dosage: UNKNOWN
  4. SYNTHROID [Concomitant]
     Dosage: UNKNOWN
  5. METFORMIN HCL [Concomitant]
     Dosage: UNKNOWN
  6. MODURETIC 5-50 [Concomitant]
     Dosage: UNKNOWN

REACTIONS (15)
  - AGGRESSION [None]
  - AGITATION [None]
  - ANHEDONIA [None]
  - ANXIETY [None]
  - APHASIA [None]
  - APPETITE DISORDER [None]
  - BREAST CANCER METASTATIC [None]
  - DEPRESSED MOOD [None]
  - FEELING ABNORMAL [None]
  - INSOMNIA [None]
  - IRREGULAR SLEEP PHASE [None]
  - IRRITABILITY [None]
  - MEMORY IMPAIRMENT [None]
  - MENOPAUSE [None]
  - SOCIAL AVOIDANT BEHAVIOUR [None]
